FAERS Safety Report 13290949 (Version 1)
Quarter: 2017Q1

REPORT INFORMATION
  Report Type: Spontaneous
  Country: SE (occurrence: SE)
  Receive Date: 20170302
  Receipt Date: 20170302
  Transmission Date: 20170428
  Serious: Yes (Other)
  Sender: FDA-Public Use
  Company Number: SE-ALEXION PHARMACEUTICALS INC.-A201701993

PATIENT
  Sex: Female

DRUGS (1)
  1. SOLIRIS [Suspect]
     Active Substance: ECULIZUMAB
     Indication: HAEMOLYTIC URAEMIC SYNDROME
     Dosage: 600 MG, SINGLE
     Route: 042
     Dates: start: 20170217

REACTIONS (4)
  - Empyema [Unknown]
  - Thrombotic microangiopathy [Unknown]
  - Pneumonia pneumococcal [Unknown]
  - Sepsis [Unknown]
